FAERS Safety Report 7960640-X (Version None)
Quarter: 2011Q4

REPORT INFORMATION
  Report Type: 
  Country: None (occurrence: None)
  Receive Date: 20111206
  Receipt Date: 20111202
  Transmission Date: 20120403
  Serious: Yes (Death)
  Sender: FDA-Public Use
  Company Number: US-ASTRAZENECA-2011SE14767

PATIENT
  Age: 55 Year
  Sex: Male

DRUGS (4)
  1. PAXIL [Concomitant]
  2. SEROQUEL [Suspect]
     Indication: MAJOR DEPRESSION
     Route: 048
     Dates: start: 20040813
  3. SEROQUEL [Suspect]
     Route: 048
  4. DIAZEPAM [Concomitant]

REACTIONS (5)
  - ARTHRITIS [None]
  - ARTERIOSCLEROSIS [None]
  - PAIN [None]
  - COLITIS [None]
  - DRUG INEFFECTIVE [None]
